FAERS Safety Report 11505268 (Version 1)
Quarter: 2015Q3

REPORT INFORMATION
  Report Type: Spontaneous
  Country: US (occurrence: US)
  Receive Date: 20150915
  Receipt Date: 20150915
  Transmission Date: 20151125
  Serious: No
  Sender: FDA-Public Use
  Company Number: US-ROCHE-767356

PATIENT
  Age: 54 Year
  Sex: Male
  Weight: 78 kg

DRUGS (4)
  1. BENICAR [Concomitant]
     Active Substance: OLMESARTAN MEDOXOMIL
     Indication: PRODUCT USED FOR UNKNOWN INDICATION
     Route: 065
  2. RIBAVIRIN. [Suspect]
     Active Substance: RIBAVIRIN
     Indication: HEPATITIS C
     Route: 048
  3. PEGASYS [Suspect]
     Active Substance: PEGINTERFERON ALFA-2A
     Indication: HEPATITIS C
     Dosage: FORM: PFS
     Route: 058
  4. DEMEROL [Concomitant]
     Active Substance: MEPERIDINE HYDROCHLORIDE
     Indication: PAIN MANAGEMENT
     Route: 065

REACTIONS (12)
  - Visual impairment [Recovered/Resolved]
  - Ocular discomfort [Not Recovered/Not Resolved]
  - Nausea [Recovered/Resolved]
  - Pallor [Recovered/Resolved]
  - Vomiting [Not Recovered/Not Resolved]
  - Procedural complication [Unknown]
  - Eye pain [Not Recovered/Not Resolved]
  - Hair colour changes [Unknown]
  - Presyncope [Unknown]
  - Feeling cold [Recovered/Resolved]
  - Alopecia [Unknown]
  - No adverse event [Unknown]

NARRATIVE: CASE EVENT DATE: 20110320
